FAERS Safety Report 21080092 (Version 1)
Quarter: 2022Q3

REPORT INFORMATION
  Report Type: Other
  Country: CZ (occurrence: CZ)
  Receive Date: 20220714
  Receipt Date: 20220714
  Transmission Date: 20221026
  Serious: Yes (Death, Other)
  Sender: FDA-Public Use
  Company Number: CZ-Accord-267432

PATIENT
  Age: 56 Year
  Sex: Female

DRUGS (11)
  1. BEVACIZUMAB [Suspect]
     Active Substance: BEVACIZUMAB
     Indication: Product used for unknown indication
     Route: 065
     Dates: start: 201706
  2. IRINOTECAN [Suspect]
     Active Substance: IRINOTECAN
     Indication: Product used for unknown indication
     Route: 065
     Dates: start: 201706
  3. OXALIPLATIN [Suspect]
     Active Substance: OXALIPLATIN
     Indication: Colon cancer
     Dosage: UNK
     Route: 065
  4. CAPECITABINE [Suspect]
     Active Substance: CAPECITABINE
     Indication: Product used for unknown indication
     Route: 065
     Dates: start: 201706
  5. BEVACIZUMAB [Concomitant]
     Active Substance: BEVACIZUMAB
     Dosage: UNK
  6. FLUOROURACIL\LEUCOVORIN [Concomitant]
     Active Substance: FLUOROURACIL\LEUCOVORIN
     Indication: Neuropathy peripheral
     Dosage: UNK
  7. TRIFLURIDINE AND TIPIRACIL HYDROCHLORIDE [Concomitant]
     Indication: Colon cancer
     Dosage: UNK
  8. TRIFLURIDINE AND TIPIRACIL HYDROCHLORIDE [Concomitant]
     Dosage: UNK, START DATE: ??-MAR-2020 00:00
  9. LEUCOVORIN CALCIUM [Concomitant]
     Active Substance: LEUCOVORIN CALCIUM
     Indication: Colon cancer
     Dosage: UNK
  10. IRINOTECAN [Concomitant]
     Active Substance: IRINOTECAN
     Dosage: UNK, START DATE: ??-JUN-2017 00:00
  11. FLUOROURACIL [Concomitant]
     Active Substance: FLUOROURACIL
     Indication: Colon cancer
     Dosage: UNK

REACTIONS (15)
  - Metastases to spleen [Unknown]
  - Leukopenia [Unknown]
  - Metastases to bone [Unknown]
  - Metastases to liver [Unknown]
  - Metastasis [Unknown]
  - Ascites [Unknown]
  - Death [Fatal]
  - Drug intolerance [Unknown]
  - Jaundice [Unknown]
  - Disease progression [Unknown]
  - Retroperitoneal lymphadenopathy [Unknown]
  - Diarrhoea [Unknown]
  - Pleural effusion [Unknown]
  - Nausea [Unknown]
  - Paraesthesia [Unknown]

NARRATIVE: CASE EVENT DATE: 20200201
